FAERS Safety Report 8233594-9 (Version None)
Quarter: 2012Q1

REPORT INFORMATION
  Report Type: 
  Country: None (occurrence: None)
  Receive Date: 20120326
  Receipt Date: 20120316
  Transmission Date: 20120608
  Serious: Yes (Other)
  Sender: FDA-Public Use
  Company Number: PHEH2012US006025

PATIENT
  Sex: Female

DRUGS (1)
  1. EXJADE [Suspect]
     Indication: HEREDITARY SPHEROCYTOSIS
     Dosage: 750 MG, DAILY
     Route: 048
     Dates: start: 20090908

REACTIONS (5)
  - SWELLING [None]
  - HERPES ZOSTER [None]
  - PRURITUS [None]
  - ERYTHEMA [None]
  - BURNING SENSATION [None]
